FAERS Safety Report 21770296 (Version 1)
Quarter: 2022Q4

REPORT INFORMATION
  Report Type: Spontaneous
  Country: FR (occurrence: FR)
  Receive Date: 20221223
  Receipt Date: 20221223
  Transmission Date: 20230113
  Serious: Yes (Life-Threatening)
  Sender: FDA-Public Use
  Company Number: None

PATIENT
  Age: 78 Year
  Sex: Male
  Weight: 71 kg

DRUGS (6)
  1. VINCRISTINE SULFATE [Interacting]
     Active Substance: VINCRISTINE SULFATE
     Indication: B-cell lymphoma
     Dosage: UNIT DOSE: 2 MG , FREQUENCY TIME : 1 TOTAL, DURATION : 1 DAYS
     Dates: start: 20221002, end: 20221002
  2. ETOPOSIDE [Interacting]
     Active Substance: ETOPOSIDE
     Indication: B-cell lymphoma
     Dosage: UNIT DOSE: 50 MG , FREQUENCY TIME : 1 TOTAL , DURATION : 1 DAYS
     Dates: start: 20221002, end: 20221002
  3. ETOPOSIDE [Interacting]
     Active Substance: ETOPOSIDE
     Dosage: UNIT DOSE: 100 MG , FREQUENCY TIME : 1 DAY, DURATION : 1 DAYS
     Dates: start: 20221002, end: 20221003
  4. RITUXIMAB [Interacting]
     Active Substance: RITUXIMAB
     Indication: B-cell lymphoma
     Dosage: RITUXIMAB ((MAMMAL/HAMSTER/CHO CELLS)), UNIT DOSE: 1400 MG , FREQUENCY TIME : 1 TOTAL, DURATION : 1
     Dates: start: 20221002, end: 20221002
  5. CYCLOPHOSPHAMIDE [Interacting]
     Active Substance: CYCLOPHOSPHAMIDE
     Indication: B-cell lymphoma
     Dosage: UNIT DOSE: 1350 MG , FREQUENCY TIME : 1 TOTAL, DURATION : 1 DAYS
     Dates: start: 20221002, end: 20221002
  6. METHYLPREDNISOLONE ACETATE [Interacting]
     Active Substance: METHYLPREDNISOLONE ACETATE
     Indication: Product used for unknown indication
     Dosage: UNIT DOSE: 100 MG , FREQUENCY TIME : 1 DAY, DURATION : 5 DAYS
     Dates: start: 20221002, end: 20221007

REACTIONS (2)
  - Sepsis [Recovering/Resolving]
  - Drug interaction [Recovering/Resolving]

NARRATIVE: CASE EVENT DATE: 20221017
